FAERS Safety Report 13163345 (Version 2)
Quarter: 2017Q1

REPORT INFORMATION
  Report Type: Spontaneous
  Country: JP (occurrence: JP)
  Receive Date: 20170130
  Receipt Date: 20170224
  Transmission Date: 20170428
  Serious: Yes (Life-Threatening, Hospitalization, Other)
  Sender: FDA-Public Use
  Company Number: JP-PFIZER INC-2016580903

PATIENT
  Age: 31 Year
  Sex: Male
  Weight: 40.65 kg

DRUGS (5)
  1. PRECEDEX [Suspect]
     Active Substance: DEXMEDETOMIDINE HYDROCHLORIDE
     Indication: INDUCTION AND MAINTENANCE OF ANAESTHESIA
     Dosage: 5 UG/KG/HR FOR 10 MINUTES
     Route: 042
     Dates: start: 20160316, end: 20160316
  2. PRECEDEX [Suspect]
     Active Substance: DEXMEDETOMIDINE HYDROCHLORIDE
     Dosage: 1.0 MCG/KG/MIN
     Route: 042
     Dates: start: 20160316, end: 20160316
  3. PROPOFOL. [Suspect]
     Active Substance: PROPOFOL
     Dosage: 3 ML/HR
     Route: 042
     Dates: start: 20160316, end: 20160316
  4. PRECEDEX [Suspect]
     Active Substance: DEXMEDETOMIDINE HYDROCHLORIDE
     Dosage: 0.3 MCG/KG/MIN
     Route: 042
     Dates: start: 20160316, end: 20160316
  5. PROPOFOL. [Suspect]
     Active Substance: PROPOFOL
     Indication: INDUCTION AND MAINTENANCE OF ANAESTHESIA
     Dosage: 10 ML/HR
     Route: 042
     Dates: start: 20160316, end: 20160316

REACTIONS (1)
  - Sinus arrest [Recovered/Resolved]

NARRATIVE: CASE EVENT DATE: 20160317
